FAERS Safety Report 10043210 (Version 5)
Quarter: 2014Q2

REPORT INFORMATION
  Report Type: Spontaneous
  Country: BE (occurrence: BE)
  Receive Date: 20140328
  Receipt Date: 20140602
  Transmission Date: 20141212
  Serious: Yes (Other)
  Sender: FDA-Public Use
  Company Number: BE-BEH-2013038945

PATIENT
  Age: 27 Year
  Sex: Female

DRUGS (2)
  1. HIZENTRA [Suspect]
     Indication: VACCINATION FAILURE
     Route: 058
     Dates: start: 20121113
  2. HIZENTRA [Suspect]
     Indication: VACCINATION FAILURE
     Route: 058
     Dates: start: 20121113

REACTIONS (3)
  - Drug ineffective for unapproved indication [Unknown]
  - Incorrect route of drug administration [Unknown]
  - Injection site swelling [Unknown]
